FAERS Safety Report 18385870 (Version 1)
Quarter: 2020Q4

REPORT INFORMATION
  Report Type: Report from Study
  Country: US (occurrence: US)
  Receive Date: 20201015
  Receipt Date: 20201015
  Transmission Date: 20210114
  Serious: Yes (Hospitalization)
  Sender: FDA-Public Use
  Company Number: US-ROCHE-2198575

PATIENT
  Age: 28 Year
  Sex: Male
  Weight: 62.3 kg

DRUGS (5)
  1. ATEZOLIZUMAB. [Suspect]
     Active Substance: ATEZOLIZUMAB
     Indication: COLORECTAL CANCER METASTATIC
     Dosage: 60 MINUTES ON DAY 1?DATE OF LAST DOSE ADMINISTERED ON 20/AUG/2018
     Route: 042
     Dates: start: 20180725
  2. 5-FLUOROURACIL [Suspect]
     Active Substance: FLUOROURACIL
     Indication: COLORECTAL CANCER METASTATIC
     Dosage: OVER 2-4 MINUTES ON DAY 1, FOLLOWED BY 2400MG/M2 CONTINUOUS INFUSION OVER 46-48 HOURS STARTING DAY 1
     Route: 042
     Dates: start: 20180725
  3. ELOXATIN [Suspect]
     Active Substance: OXALIPLATIN
     Indication: COLORECTAL CANCER METASTATIC
     Dosage: LAST ADMINISTERED: 05/SEP/2018
     Route: 042
     Dates: start: 20180725
  4. BEVACIZUMAB. [Suspect]
     Active Substance: BEVACIZUMAB
     Indication: COLORECTAL CANCER METASTATIC
     Dosage: OVER 90 MINUTES ON DAY 1?DATE OF LAST DOSE ADMINISTERED ON 25 JUL 2018
     Route: 042
     Dates: start: 20180725
  5. LEUCOVORIN CALCIUM. [Suspect]
     Active Substance: LEUCOVORIN CALCIUM
     Indication: COLORECTAL CANCER METASTATIC
     Dosage: OVER 2 HOURS ON DAY 1?DATE OF LAST DOSE ADMINISTERED ON 20 AUG 2018
     Route: 042
     Dates: start: 20180725

REACTIONS (3)
  - Anal fistula [Recovered/Resolved]
  - Sepsis [Recovered/Resolved]
  - Urinary tract infection [Recovered/Resolved]

NARRATIVE: CASE EVENT DATE: 20180827
